FAERS Safety Report 21036470 (Version 1)
Quarter: 2022Q3

REPORT INFORMATION
  Report Type: Report from Study
  Country: ZA (occurrence: ZA)
  Receive Date: 20220702
  Receipt Date: 20220702
  Transmission Date: 20221027
  Serious: Yes (Hospitalization, Other)
  Sender: FDA-Public Use
  Company Number: ZA-ABBVIE-22K-143-4451534-00

PATIENT
  Sex: Male

DRUGS (1)
  1. HUMIRA [Suspect]
     Active Substance: ADALIMUMAB
     Indication: Crohn^s disease
     Route: 058
     Dates: start: 20210813, end: 202205

REACTIONS (3)
  - Intervertebral disc protrusion [Recovering/Resolving]
  - Prostate cancer metastatic [Not Recovered/Not Resolved]
  - Abdominal abscess [Not Recovered/Not Resolved]

NARRATIVE: CASE EVENT DATE: 20211101
